FAERS Safety Report 15949543 (Version 3)
Quarter: 2019Q2

REPORT INFORMATION
  Report Type: Report from Study
  Country: None (occurrence: DE)
  Receive Date: 20190212
  Receipt Date: 20190510
  Transmission Date: 20190711
  Serious: Yes (Hospitalization, Other)
  Sender: FDA-Public Use
  Company Number: DE-ABBVIE-19S-062-2659907-00

PATIENT
  Sex: Male

DRUGS (2)
  1. DUODOPA [Suspect]
     Active Substance: CARBIDOPA\LEVODOPA
     Indication: PARKINSON^S DISEASE
     Dosage: MD 5 ML, CRD 4.4 ML/H, CRN 2.0 ML/H, ED 5.0 ML
     Route: 050
     Dates: start: 20180607, end: 2019
  2. DUODOPA [Suspect]
     Active Substance: CARBIDOPA\LEVODOPA
     Dosage: MD 5 ML; CRD 4 ML/HR; CRN 1.4 ML/HR; ED 5.0 ML
     Route: 050
     Dates: start: 2019

REACTIONS (1)
  - Infection [Not Recovered/Not Resolved]
